FAERS Safety Report 4715947-6 (Version None)
Quarter: 2005Q3

REPORT INFORMATION
  Report Type: 
  Country: None (occurrence: None)
  Receive Date: 20050718
  Receipt Date: 20050707
  Transmission Date: 20060218
  Serious: Yes (Hospitalization)
  Sender: FDA-Public Use
  Company Number: 2005UW10131

PATIENT
  Age: 67 Year
  Sex: Male

DRUGS (9)
  1. CRESTOR [Suspect]
     Indication: BLOOD CHOLESTEROL INCREASED
     Route: 048
     Dates: start: 20050413
  2. EPIVIR [Interacting]
  3. SUSTIVA [Interacting]
  4. ZERIT [Interacting]
  5. EPIVIR [Concomitant]
  6. SUSTIVA [Concomitant]
  7. ZERIT [Concomitant]
  8. INSULIN [Concomitant]
  9. TOPROL-XL [Concomitant]
     Route: 048

REACTIONS (3)
  - DRUG INTERACTION [None]
  - GASTROENTERITIS [None]
  - RHABDOMYOLYSIS [None]
